FAERS Safety Report 9799986 (Version 1)
Quarter: 2014Q1

REPORT INFORMATION
  Report Type: Spontaneous
  Country: US (occurrence: US)
  Receive Date: 20140106
  Receipt Date: 20140106
  Transmission Date: 20141002
  Serious: No
  Sender: FDA-Public Use
  Company Number: US-GILEAD-2010-0030496

PATIENT
  Age: 74 Year
  Sex: Female
  Weight: 77.11 kg

DRUGS (10)
  1. LETAIRIS [Suspect]
     Indication: PULMONARY ARTERIAL HYPERTENSION
     Route: 048
     Dates: start: 20071031
  2. FERROUS SULFATE [Concomitant]
  3. IMODIUM A-D [Concomitant]
  4. REVATIO [Concomitant]
  5. METOCLORPRMIDE [Concomitant]
  6. EFEXOR [Concomitant]
  7. COUMADIN [Concomitant]
  8. DIOVAN [Concomitant]
  9. ALLEGRA-D [Concomitant]
  10. CALCIUM [Concomitant]

REACTIONS (1)
  - Dyspnoea [Unknown]
